FAERS Safety Report 8776725 (Version 2)
Quarter: 2012Q4

REPORT INFORMATION
  Report Type: 
  Country: MX (occurrence: MX)
  Receive Date: 20120910
  Receipt Date: 20121008
  Transmission Date: 20130627
  Serious: Yes (Death, Hospitalization)
  Sender: FDA-Public Use
  Company Number: PHHY2012MX068149

PATIENT
  Sex: Female

DRUGS (6)
  1. EXELON PATCH [Suspect]
     Indication: DEMENTIA ALZHEIMER^S TYPE
     Dosage: 1 patch (5cm2/4.6 mg) daily
     Route: 062
     Dates: start: 201207
  2. OMEPRAZOL [Concomitant]
     Dosage: 1 DF daily
  3. SEROQUEL [Concomitant]
     Dosage: 1/4 of tablet daily
  4. ASPIRINA [Concomitant]
     Dosage: 1 DF daily
  5. MORFESINA [Concomitant]
  6. CAMER [Concomitant]
     Dosage: 1 DF daily

REACTIONS (3)
  - Death [Fatal]
  - Pneumonia [Recovering/Resolving]
  - Increased upper airway secretion [Unknown]
